FAERS Safety Report 8908358 (Version 2)
Quarter: 2013Q1

REPORT INFORMATION
  Report Type: Spontaneous
  Country: GB (occurrence: GB)
  Receive Date: 20121114
  Receipt Date: 20130208
  Transmission Date: 20140127
  Serious: Yes (Other)
  Sender: FDA-Public Use
  Company Number: PHFR2012GB005911

PATIENT
  Sex: Male

DRUGS (3)
  1. CLOZARIL [Suspect]
     Indication: SCHIZOPHRENIA
     Dosage: UNK
     Route: 048
     Dates: start: 20121023, end: 20121101
  2. CLOZARIL [Suspect]
     Dosage: UNK
     Route: 048
     Dates: start: 20121113
  3. HEROIN [Concomitant]

REACTIONS (1)
  - Injection site cellulitis [Unknown]
